FAERS Safety Report 17971817 (Version 3)
Quarter: 2020Q3

REPORT INFORMATION
  Report Type: Spontaneous
  Country: US (occurrence: US)
  Receive Date: 20200702
  Receipt Date: 20200730
  Transmission Date: 20201103
  Serious: No
  Sender: FDA-Public Use
  Company Number: US-GLAXOSMITHKLINE-US2020AMR115041

PATIENT
  Sex: Female

DRUGS (3)
  1. ZEJULA [Suspect]
     Active Substance: NIRAPARIB
     Dosage: 200 MG, QD
     Route: 065
  2. ZEJULA [Suspect]
     Active Substance: NIRAPARIB
     Dosage: 200 MG, QD
     Route: 065
     Dates: start: 202006
  3. ZEJULA [Suspect]
     Active Substance: NIRAPARIB
     Indication: OVARIAN CANCER
     Dosage: 100 MG, QD
     Route: 065
     Dates: start: 20200604

REACTIONS (11)
  - Nausea [Recovered/Resolved]
  - Rash [Unknown]
  - Contusion [Unknown]
  - Dyspepsia [Unknown]
  - Dysphonia [Unknown]
  - Constipation [Unknown]
  - Tumour marker increased [Not Recovered/Not Resolved]
  - Headache [Unknown]
  - Blood glucose fluctuation [Unknown]
  - Gastric disorder [Unknown]
  - Blood magnesium decreased [Unknown]
